FAERS Safety Report 9805900 (Version 1)
Quarter: 2014Q1

REPORT INFORMATION
  Report Type: Spontaneous
  Country: FR (occurrence: FR)
  Receive Date: 20140109
  Receipt Date: 20140109
  Transmission Date: 20141002
  Serious: Yes (Death, Hospitalization)
  Sender: FDA-Public Use
  Company Number: FR-B.I. PHARMACEUTICALS,INC./RIDGEFIELD-2014-BI-00873FF

PATIENT
  Age: 85 Year
  Sex: Male

DRUGS (9)
  1. MECIR [Suspect]
     Dosage: 0.4 MG
     Route: 048
  2. TAVANIC [Suspect]
     Dosage: 250 MG
     Route: 048
     Dates: start: 20130910, end: 20131029
  3. AUGMENTIN [Suspect]
     Dosage: 3 G
     Route: 048
     Dates: start: 20130910, end: 20131029
  4. INIPOMP [Suspect]
     Dosage: 20 MG
     Route: 048
     Dates: end: 20131026
  5. NOVONORM [Suspect]
     Dosage: 3 MG
     Route: 048
     Dates: end: 20131031
  6. KARDEGIC [Suspect]
     Dosage: 160 MG
     Route: 048
  7. XANAX [Suspect]
     Dosage: 1 MG
     Route: 048
     Dates: start: 20131023, end: 20131026
  8. INNOHEP [Suspect]
     Dosage: 0.7 ML
     Route: 058
  9. CERIS [Suspect]
     Dosage: 20 MG
     Route: 048
     Dates: end: 20131027

REACTIONS (2)
  - Hepatitis [Fatal]
  - Hepatic encephalopathy [Fatal]
